FAERS Safety Report 6415207-1 (Version None)
Quarter: 2009Q4

REPORT INFORMATION
  Report Type: 
  Country: None (occurrence: None)
  Receive Date: 20091027
  Receipt Date: 20091022
  Transmission Date: 20100525
  Serious: Yes (Other)
  Sender: FDA-Public Use
  Company Number: CA-SP-2009-02736

PATIENT
  Age: 21 Year
  Sex: Male
  Weight: 73 kg

DRUGS (2)
  1. TUBERSOL [Suspect]
     Indication: TUBERCULIN TEST
     Route: 023
     Dates: start: 20080707
  2. TUBERSOL [Suspect]
     Route: 023
     Dates: start: 20080707

REACTIONS (3)
  - ANAPHYLACTIC REACTION [None]
  - CHEST DISCOMFORT [None]
  - INJECTION SITE REACTION [None]
